FAERS Safety Report 4929498-7 (Version None)
Quarter: 2006Q1

REPORT INFORMATION
  Report Type: 
  Country: None (occurrence: None)
  Receive Date: 20060224
  Receipt Date: 20060215
  Transmission Date: 20060701
  Serious: Yes (Hospitalization)
  Sender: FDA-Public Use
  Company Number: ZONI002262

PATIENT
  Age: 17 Year
  Sex: Male

DRUGS (4)
  1. ZONISAMIDE [Suspect]
     Indication: EPILEPSY
     Dosage: 300 MG, 1 IN 1 D, ORAL
     Route: 048
     Dates: start: 20051101, end: 20060119
  2. PL [Concomitant]
  3. CALONAL (PARACETAMOL) [Concomitant]
  4. POLARAMINE [Concomitant]

REACTIONS (5)
  - ALANINE AMINOTRANSFERASE INCREASED [None]
  - ASPARTATE AMINOTRANSFERASE INCREASED [None]
  - GAMMA-GLUTAMYLTRANSFERASE INCREASED [None]
  - HEPATIC FUNCTION ABNORMAL [None]
  - STEVENS-JOHNSON SYNDROME [None]
